FAERS Safety Report 9971243 (Version 1)
Quarter: 2014Q1

REPORT INFORMATION
  Report Type: Spontaneous
  Country: US (occurrence: None)
  Receive Date: 20140305
  Receipt Date: 20140305
  Transmission Date: 20141002
  Serious: Yes (Disabling)
  Sender: FDA-Public Use
  Company Number: None

PATIENT
  Sex: 0

DRUGS (2)
  1. ABILIFY [Suspect]
     Indication: ANTIDEPRESSANT THERAPY
     Dosage: TAKEN BY MOUTH
     Dates: start: 20110501, end: 20130615
  2. ABILIFY [Suspect]
     Indication: ADJUVANT THERAPY
     Dosage: TAKEN BY MOUTH
     Dates: start: 20110501, end: 20130615

REACTIONS (1)
  - Tardive dyskinesia [None]
